FAERS Safety Report 9398759 (Version 1)
Quarter: 2013Q3

REPORT INFORMATION
  Report Type: Spontaneous
  Country: US (occurrence: US)
  Receive Date: 20130712
  Receipt Date: 20130712
  Transmission Date: 20140515
  Serious: No
  Sender: FDA-Public Use
  Company Number: US-009507513-1307USA005940

PATIENT
  Age: 81 Year
  Sex: Female

DRUGS (1)
  1. COSOPT PF [Suspect]
     Indication: GLAUCOMA
     Dosage: 2 DROPS, BID, ONCE IN THE MORNING AND ONCE AT NIGHT
     Route: 047
     Dates: start: 201306

REACTIONS (2)
  - Eye injury [Unknown]
  - Product physical issue [Unknown]
